FAERS Safety Report 11444629 (Version 1)
Quarter: 2015Q3

REPORT INFORMATION
  Report Type: Spontaneous
  Country: US (occurrence: None)
  Receive Date: 20150901
  Receipt Date: 20150901
  Transmission Date: 20151125
  Serious: Yes (Death)
  Sender: FDA-Public Use
  Company Number: None

PATIENT
  Age: 69 Year
  Sex: Female

DRUGS (1)
  1. PACLITAXEL HOSPIRA [Suspect]
     Active Substance: PACLITAXEL
     Indication: CHEMOTHERAPY
     Route: 042
     Dates: start: 20150810, end: 20150810

REACTIONS (7)
  - Unresponsive to stimuli [None]
  - Pulse abnormal [None]
  - Paraesthesia [None]
  - Wheezing [None]
  - Vomiting [None]
  - Oxygen saturation decreased [None]
  - Blood pressure immeasurable [None]

NARRATIVE: CASE EVENT DATE: 20150810
